FAERS Safety Report 7868396-6 (Version None)
Quarter: 2011Q4

REPORT INFORMATION
  Report Type: 
  Country: None (occurrence: None)
  Receive Date: 20111028
  Receipt Date: 20110103
  Transmission Date: 20120403
  Serious: No
  Sender: FDA-Public Use
  Company Number: US-AMGEN-KDL437363

PATIENT
  Age: 39 Year
  Sex: Female

DRUGS (6)
  1. PREDNISONE [Concomitant]
     Dosage: 2 MG, QD
     Route: 048
  2. MULTI-VITAMINS [Concomitant]
     Dosage: UNK UNK, QD
     Route: 048
  3. LOVAZA [Concomitant]
     Dosage: UNK UNK, UNK
     Route: 048
  4. CALCIUM [Concomitant]
     Dosage: UNK UNK, UNK
     Route: 048
  5. IRON [Concomitant]
  6. ENBREL [Suspect]
     Indication: RHEUMATOID ARTHRITIS
     Dosage: 50 MG, QWK
     Route: 058
     Dates: start: 20060301, end: 20100801

REACTIONS (1)
  - ANTINUCLEAR ANTIBODY POSITIVE [None]
